FAERS Safety Report 7641618-2 (Version None)
Quarter: 2011Q3

REPORT INFORMATION
  Report Type: 
  Country: None (occurrence: None)
  Receive Date: 20110728
  Receipt Date: 20110708
  Transmission Date: 20111222
  Serious: Yes (Hospitalization)
  Sender: FDA-Public Use
  Company Number: US-GLAXOSMITHKLINE-A0748264A

PATIENT
  Age: 72 Year
  Sex: Male
  Weight: 103.2 kg

DRUGS (9)
  1. AVANDAMET [Suspect]
     Indication: DIABETES MELLITUS
     Route: 048
     Dates: start: 20041231, end: 20070101
  2. CELEBREX [Concomitant]
  3. GLUCOTROL [Concomitant]
  4. AVANDIA [Suspect]
     Indication: DIABETES MELLITUS
     Dosage: 2MG TWICE PER DAY
     Route: 048
     Dates: start: 20060804
  5. GLUCOPHAGE [Concomitant]
  6. AMARYL [Concomitant]
  7. TOPROL-XL [Concomitant]
  8. ACTOS [Concomitant]
  9. GLYBURIDE [Concomitant]

REACTIONS (3)
  - CORONARY ARTERY DISEASE [None]
  - HEART INJURY [None]
  - MYOCARDIAL INFARCTION [None]
